FAERS Safety Report 6774112-1 (Version None)
Quarter: 2010Q2

REPORT INFORMATION
  Report Type: 
  Country: None (occurrence: None)
  Receive Date: 20100617
  Receipt Date: 20100611
  Transmission Date: 20101027
  Serious: Yes (Hospitalization, Other)
  Sender: FDA-Public Use
  Company Number: FR-RB-008381-10

PATIENT
  Age: 29 Year
  Sex: Male

DRUGS (6)
  1. SUBUTEX [Suspect]
     Indication: DRUG THERAPY
     Route: 048
     Dates: start: 20090513
  2. SERESTA [Suspect]
     Indication: DRUG USE FOR UNKNOWN INDICATION
     Dosage: UNIT DOSE AND FREQUENCY UNKNOWN
     Route: 048
     Dates: start: 20090513, end: 20090513
  3. TERCIAN [Suspect]
     Indication: DRUG USE FOR UNKNOWN INDICATION
     Route: 048
     Dates: start: 20090513, end: 20090513
  4. ROHYPNOL [Suspect]
     Indication: DRUG USE FOR UNKNOWN INDICATION
     Dosage: UNIT DOSE AND FREQUENCY UNKNOWN
     Route: 048
     Dates: start: 20090513, end: 20090513
  5. ACETAMINOPHEN [Concomitant]
     Indication: DRUG USE FOR UNKNOWN INDICATION
     Dosage: UNKNOWN DOSING DETAILS
     Route: 065
  6. AMOXICILLIN [Concomitant]
     Indication: DRUG USE FOR UNKNOWN INDICATION
     Dosage: UNKNOWN DOSING DETAILS
     Route: 065

REACTIONS (4)
  - COMA [None]
  - INCORRECT ROUTE OF DRUG ADMINISTRATION [None]
  - OVERDOSE [None]
  - SUBSTANCE ABUSE [None]
